FAERS Safety Report 7652639-8 (Version None)
Quarter: 2011Q3

REPORT INFORMATION
  Report Type: 
  Country: None (occurrence: None)
  Receive Date: 20110722
  Receipt Date: 20101117
  Transmission Date: 20111222
  Serious: Yes (Hospitalization)
  Sender: FDA-Public Use
  Company Number: UTC-002524

PATIENT
  Age: 34 Year
  Sex: Female
  Weight: 88.9 kg

DRUGS (3)
  1. DIURETICS (DIURETICS) [Concomitant]
  2. REMODULIN [Suspect]
     Dosage: 31.68 UG/KG (0.022 UG/KG, 1 IN 1 MIN), INTRAVENOUS
     Route: 042
     Dates: start: 20101115
  3. ADCIRCA [Concomitant]

REACTIONS (3)
  - DIARRHOEA [None]
  - PAIN [None]
  - FATIGUE [None]
